FAERS Safety Report 17547285 (Version 3)
Quarter: 2020Q1

REPORT INFORMATION
  Report Type: Report from Study
  Country: EE (occurrence: EE)
  Receive Date: 20200316
  Receipt Date: 20200331
  Transmission Date: 20200409
  Serious: Yes (Hospitalization)
  Sender: FDA-Public Use
  Company Number: EE-JNJFOC-20200303166

PATIENT
  Age: 63 Year
  Sex: Female
  Weight: 88 kg

DRUGS (1)
  1. GUSELKUMAB [Suspect]
     Active Substance: GUSELKUMAB
     Indication: PSORIATIC ARTHROPATHY
     Route: 058
     Dates: start: 20180528, end: 20200204

REACTIONS (1)
  - Herpes zoster disseminated [Not Recovered/Not Resolved]

NARRATIVE: CASE EVENT DATE: 20200226
